FAERS Safety Report 18209357 (Version 1)
Quarter: 2020Q3

REPORT INFORMATION
  Report Type: Spontaneous
  Country: US (occurrence: US)
  Receive Date: 20200828
  Receipt Date: 20200828
  Transmission Date: 20201103
  Serious: Yes (Hospitalization, Disabling, Other)
  Sender: FDA-Public Use
  Company Number: US-PURDUE-USA-2020-0163570

PATIENT
  Sex: Male

DRUGS (2)
  1. ROXICODONE [Suspect]
     Active Substance: OXYCODONE HYDROCHLORIDE
     Indication: PRODUCT USED FOR UNKNOWN INDICATION
     Route: 065
  2. HYDROCODONE BITARTRATE (SIMILAR TO NDA 206627) [Suspect]
     Active Substance: HYDROCODONE BITARTRATE
     Indication: NECK MASS
     Route: 048

REACTIONS (4)
  - Suicidal ideation [Unknown]
  - Drug dependence [Unknown]
  - Hospitalisation [Unknown]
  - Crime [Unknown]

NARRATIVE: CASE EVENT DATE: 2015
